FAERS Safety Report 7402452-1 (Version None)
Quarter: 2011Q2

REPORT INFORMATION
  Report Type: 
  Country: None (occurrence: None)
  Receive Date: 20110408
  Receipt Date: 20110324
  Transmission Date: 20111010
  Serious: Yes (Death, Other)
  Sender: FDA-Public Use
  Company Number: PHEH2009US16680

PATIENT
  Sex: Female
  Weight: 90 kg

DRUGS (1)
  1. EXJADE [Suspect]
     Indication: NEOPLASM
     Dosage: 1500 MG PER DAY
     Route: 048
     Dates: start: 20070517, end: 20090412

REACTIONS (2)
  - GASTROINTESTINAL TOXICITY [None]
  - DEATH [None]
